FAERS Safety Report 24090458 (Version 3)
Quarter: 2024Q3

REPORT INFORMATION
  Report Type: Report from Study
  Country: JP (occurrence: JP)
  Receive Date: 20240715
  Receipt Date: 20240808
  Transmission Date: 20241016
  Serious: Yes (Life-Threatening, Other)
  Sender: ROCHE
  Company Number: JP-CHUGAI-2024017412

PATIENT
  Age: 74 Year
  Sex: Female
  Weight: 48 kg

DRUGS (42)
  1. POLIVY [Suspect]
     Active Substance: POLATUZUMAB VEDOTIN-PIIQ
     Indication: Diffuse large B-cell lymphoma
     Route: 065
     Dates: start: 20231005, end: 20231005
  2. POLIVY [Suspect]
     Active Substance: POLATUZUMAB VEDOTIN-PIIQ
     Route: 065
     Dates: start: 20231030, end: 20231030
  3. POLIVY [Suspect]
     Active Substance: POLATUZUMAB VEDOTIN-PIIQ
     Route: 065
     Dates: start: 20231120, end: 20231120
  4. POLIVY [Suspect]
     Active Substance: POLATUZUMAB VEDOTIN-PIIQ
     Route: 065
     Dates: start: 20231211, end: 20231211
  5. POLIVY [Suspect]
     Active Substance: POLATUZUMAB VEDOTIN-PIIQ
     Route: 065
     Dates: start: 20240115, end: 20240115
  6. POLIVY [Suspect]
     Active Substance: POLATUZUMAB VEDOTIN-PIIQ
     Route: 065
     Dates: start: 20240205, end: 20240205
  7. RITUXIMAB [Concomitant]
     Active Substance: RITUXIMAB
     Indication: Diffuse large B-cell lymphoma
     Dosage: 550 MILLIGRAM
     Route: 042
     Dates: start: 20231006, end: 20231006
  8. RITUXIMAB [Concomitant]
     Active Substance: RITUXIMAB
     Dosage: 550 MILLIGRAM
     Route: 042
     Dates: start: 20231030, end: 20231030
  9. RITUXIMAB [Concomitant]
     Active Substance: RITUXIMAB
     Dosage: 550 MILLIGRAM
     Route: 042
     Dates: start: 20231120, end: 20231120
  10. RITUXIMAB [Concomitant]
     Active Substance: RITUXIMAB
     Dosage: 550 MILLIGRAM
     Route: 042
     Dates: start: 20231211, end: 20231211
  11. RITUXIMAB [Concomitant]
     Active Substance: RITUXIMAB
     Dosage: 550 MILLIGRAM
     Route: 042
     Dates: start: 20240115, end: 20240115
  12. RITUXIMAB [Concomitant]
     Active Substance: RITUXIMAB
     Dosage: 550 MILLIGRAM
     Route: 042
     Dates: start: 20240205, end: 20240205
  13. RITUXIMAB [Concomitant]
     Active Substance: RITUXIMAB
     Dosage: 550 MILLIGRAM
     Route: 042
     Dates: start: 20240226, end: 20240226
  14. RITUXIMAB [Concomitant]
     Active Substance: RITUXIMAB
     Dosage: 550 MILLIGRAM
     Route: 042
     Dates: start: 20240318, end: 20240318
  15. CYCLOPHOSPHAMIDE [Concomitant]
     Active Substance: CYCLOPHOSPHAMIDE
     Indication: Diffuse large B-cell lymphoma
     Dosage: 1000 MILLIGRAM
     Route: 042
     Dates: start: 20231005, end: 20231005
  16. CYCLOPHOSPHAMIDE [Concomitant]
     Active Substance: CYCLOPHOSPHAMIDE
     Dosage: 1000 MILLIGRAM
     Route: 042
     Dates: start: 20231030, end: 20231030
  17. CYCLOPHOSPHAMIDE [Concomitant]
     Active Substance: CYCLOPHOSPHAMIDE
     Dosage: 1000 MILLIGRAM
     Route: 042
     Dates: start: 20231120, end: 20231120
  18. CYCLOPHOSPHAMIDE [Concomitant]
     Active Substance: CYCLOPHOSPHAMIDE
     Dosage: 700 MILLIGRAM
     Route: 042
     Dates: start: 20231211, end: 20231211
  19. CYCLOPHOSPHAMIDE [Concomitant]
     Active Substance: CYCLOPHOSPHAMIDE
     Dosage: 700 MILLIGRAM
     Route: 042
     Dates: start: 20240115, end: 20240115
  20. CYCLOPHOSPHAMIDE [Concomitant]
     Active Substance: CYCLOPHOSPHAMIDE
     Dosage: 700 MILLIGRAM
     Route: 042
     Dates: start: 20240205, end: 20240205
  21. DOXORUBICIN HYDROCHLORIDE [Concomitant]
     Active Substance: DOXORUBICIN HYDROCHLORIDE
     Indication: Diffuse large B-cell lymphoma
     Dosage: 70 MILLIGRAM
     Route: 042
     Dates: start: 20231005, end: 20231005
  22. DOXORUBICIN HYDROCHLORIDE [Concomitant]
     Active Substance: DOXORUBICIN HYDROCHLORIDE
     Dosage: 70 MILLIGRAM
     Route: 042
     Dates: start: 20231030, end: 20231030
  23. DOXORUBICIN HYDROCHLORIDE [Concomitant]
     Active Substance: DOXORUBICIN HYDROCHLORIDE
     Dosage: 70 MILLIGRAM
     Route: 042
     Dates: start: 20231120, end: 20231120
  24. DOXORUBICIN HYDROCHLORIDE [Concomitant]
     Active Substance: DOXORUBICIN HYDROCHLORIDE
     Dosage: 50 MILLIGRAM
     Route: 042
     Dates: start: 20231211, end: 20231211
  25. DOXORUBICIN HYDROCHLORIDE [Concomitant]
     Active Substance: DOXORUBICIN HYDROCHLORIDE
     Dosage: 50 MILLIGRAM
     Route: 042
     Dates: start: 20240115, end: 20240115
  26. DOXORUBICIN HYDROCHLORIDE [Concomitant]
     Active Substance: DOXORUBICIN HYDROCHLORIDE
     Dosage: 50 MILLIGRAM
     Route: 042
     Dates: start: 20240205, end: 20240205
  27. PREDNISOLONE [Concomitant]
     Active Substance: PREDNISOLONE
     Indication: Diffuse large B-cell lymphoma
     Dosage: 100 MILLIGRAM
     Route: 050
     Dates: start: 20231005, end: 20231009
  28. PREDNISOLONE [Concomitant]
     Active Substance: PREDNISOLONE
     Dosage: 100 MILLIGRAM
     Route: 050
     Dates: start: 20231030, end: 20231103
  29. PREDNISOLONE [Concomitant]
     Active Substance: PREDNISOLONE
     Dosage: 100 MILLIGRAM
     Route: 050
     Dates: start: 20231120, end: 20231124
  30. PREDNISOLONE [Concomitant]
     Active Substance: PREDNISOLONE
     Dosage: 100 MILLIGRAM
     Route: 050
     Dates: start: 20231211, end: 20231215
  31. PREDNISOLONE [Concomitant]
     Active Substance: PREDNISOLONE
     Dosage: 100 MILLIGRAM
     Route: 050
     Dates: start: 20240115, end: 20240119
  32. PREDNISOLONE [Concomitant]
     Active Substance: PREDNISOLONE
     Dosage: 100 MILLIGRAM
     Route: 050
     Dates: start: 20240205, end: 20240209
  33. PEGFILGRASTIM [Concomitant]
     Active Substance: PEGFILGRASTIM
     Dosage: UNK
     Route: 065
  34. PEGFILGRASTIM [Concomitant]
     Active Substance: PEGFILGRASTIM
     Dosage: UNK
  35. RITUXIMAB [Concomitant]
     Active Substance: RITUXIMAB
     Indication: Diffuse large B-cell lymphoma
     Route: 065
     Dates: start: 20231006, end: 20231006
  36. RITUXIMAB [Concomitant]
     Active Substance: RITUXIMAB
     Route: 065
     Dates: start: 20231030, end: 20231030
  37. RITUXIMAB [Concomitant]
     Active Substance: RITUXIMAB
     Route: 065
     Dates: start: 20231120, end: 20231120
  38. RITUXIMAB [Concomitant]
     Active Substance: RITUXIMAB
     Route: 065
     Dates: start: 20231211, end: 20231211
  39. RITUXIMAB [Concomitant]
     Active Substance: RITUXIMAB
     Route: 065
     Dates: start: 20240115, end: 20240115
  40. RITUXIMAB [Concomitant]
     Active Substance: RITUXIMAB
     Route: 065
     Dates: start: 20240205, end: 20240205
  41. RITUXIMAB [Concomitant]
     Active Substance: RITUXIMAB
     Route: 065
     Dates: start: 20240226, end: 20240226
  42. RITUXIMAB [Concomitant]
     Active Substance: RITUXIMAB
     Route: 065
     Dates: start: 20240318, end: 20240318

REACTIONS (3)
  - Oesophageal carcinoma [Recovered/Resolved]
  - Lung neoplasm malignant [Recovered/Resolved]
  - Myelosuppression [Unknown]

NARRATIVE: CASE EVENT DATE: 20240418
